FAERS Safety Report 8529137 (Version 2)
Quarter: 2012Q4

REPORT INFORMATION
  Report Type: 
  Country: US (occurrence: US)
  Receive Date: 20120425
  Receipt Date: 20121024
  Transmission Date: 20130627
  Serious: Yes (Hospitalization)
  Sender: FDA-Public Use
  Company Number: US-BAYER-2012-039049

PATIENT
  Age: 23 Year
  Sex: Female
  Weight: 108.84 kg

DRUGS (3)
  1. YASMIN [Suspect]
     Indication: ACNE
  2. YAZ [Suspect]
  3. MOTRIN [Concomitant]

REACTIONS (3)
  - Cholecystectomy [None]
  - Injury [None]
  - Pain [None]
